FAERS Safety Report 12435801 (Version 1)
Quarter: 2016Q2

REPORT INFORMATION
  Report Type: Spontaneous
  Country: US (occurrence: US)
  Receive Date: 20160603
  Receipt Date: 20160603
  Transmission Date: 20160815
  Serious: No
  Sender: FDA-Public Use
  Company Number: US-ALLERGAN-1654858US

PATIENT
  Age: 34 Year
  Sex: Male

DRUGS (1)
  1. CONDYLOX [Suspect]
     Active Substance: PODOFILOX
     Indication: SKIN PAPILLOMA
     Route: 061

REACTIONS (1)
  - Drug ineffective [Unknown]
